FAERS Safety Report 5966469-6 (Version None)
Quarter: 2008Q4

REPORT INFORMATION
  Report Type: 
  Country: None (occurrence: None)
  Receive Date: 20081125
  Receipt Date: 20081113
  Transmission Date: 20090506
  Serious: Yes (Death, Other)
  Sender: FDA-Public Use
  Company Number: CA-ELI_LILLY_AND_COMPANY-CA200811003329

PATIENT
  Age: 91 Year
  Sex: Male

DRUGS (21)
  1. ZYPREXA ZYDIS [Suspect]
     Dosage: 5 MG, AS NEEDED
     Route: 048
  2. OLANZAPINE [Suspect]
     Dosage: 2.5 MG, DAILY (1/D)
     Route: 048
  3. ASPIRIN [Concomitant]
     Dosage: 81 MG, UNK
  4. ATROVENT [Concomitant]
  5. FLOMAX [Concomitant]
  6. FLOVENT [Concomitant]
  7. GABAPENTIN [Concomitant]
     Dosage: 100 MG, UNK
  8. PALAFER [Concomitant]
  9. SENOKOT [Concomitant]
  10. SPIRIVA [Concomitant]
  11. ZANTAC [Concomitant]
  12. ACETAMINOPHEN [Concomitant]
     Dosage: 500 MG, UNK
  13. CEFUROXIME [Concomitant]
  14. ERYTHROMYCIN [Concomitant]
  15. NITROGLYCERIN [Concomitant]
     Route: 062
  16. LACTULOSE [Concomitant]
  17. NOVO-METOPROLOL [Concomitant]
     Dosage: 25 MG, UNK
  18. OMEPRAZOLE [Concomitant]
  19. ALBUTEROL SULFATE [Concomitant]
  20. ZOPICLONE [Concomitant]
     Dosage: 3.75 MG, UNK
  21. RANITIDINE [Concomitant]

REACTIONS (2)
  - CEREBROVASCULAR ACCIDENT [None]
  - PULMONARY OEDEMA [None]
